FAERS Safety Report 5638378-3 (Version None)
Quarter: 2008Q1

REPORT INFORMATION
  Report Type: 
  Country: None (occurrence: None)
  Receive Date: 20080226
  Receipt Date: 20080219
  Transmission Date: 20080703
  Serious: Yes (Disabling)
  Sender: FDA-Public Use
  Company Number: CH-ASTRAZENECA-2008PK00369

PATIENT
  Age: 42 Year
  Sex: Male

DRUGS (4)
  1. SEROQUEL [Suspect]
     Indication: PSYCHOTIC DISORDER
     Route: 048
     Dates: start: 20071212
  2. TOPAMAX [Suspect]
     Indication: ACUTE PSYCHOSIS
     Route: 048
     Dates: start: 20071213
  3. ZOLOFT [Concomitant]
     Indication: DEPRESSION
     Route: 048
     Dates: start: 20060401
  4. TRANXILIUM [Concomitant]
     Indication: DEPRESSION
     Route: 048
     Dates: start: 20050601

REACTIONS (5)
  - COGWHEEL RIGIDITY [None]
  - CONDITION AGGRAVATED [None]
  - DYSARTHRIA [None]
  - EXTRAPYRAMIDAL DISORDER [None]
  - TREMOR [None]
